FAERS Safety Report 13267674 (Version 4)
Quarter: 2017Q2

REPORT INFORMATION
  Report Type: Spontaneous
  Country: US (occurrence: US)
  Receive Date: 20170224
  Receipt Date: 20170530
  Transmission Date: 20170830
  Serious: Yes (Hospitalization, Other)
  Sender: FDA-Public Use
  Company Number: US-PFIZER INC-2017081051

PATIENT
  Age: 60 Year
  Sex: Male
  Weight: 95 kg

DRUGS (19)
  1. PERCOCET [Concomitant]
     Active Substance: ACETAMINOPHEN\OXYCODONE HYDROCHLORIDE
     Indication: NECK PAIN
  2. BUSPIRONE [Concomitant]
     Active Substance: BUSPIRONE HYDROCHLORIDE
     Indication: MENTAL STATUS CHANGES
     Dosage: 50 MG, 4X/DAY
  3. LYRICA [Suspect]
     Active Substance: PREGABALIN
     Dosage: 75 MG, 2X/DAY
     Route: 048
     Dates: start: 2013
  4. BACLOFEN. [Concomitant]
     Active Substance: BACLOFEN
     Dosage: 20 MG, 2X/DAY
     Route: 048
  5. CLARITIN [Concomitant]
     Active Substance: LORATADINE
     Indication: HYPERSENSITIVITY
     Dosage: 10 MG, 1X/DAY
  6. TERBUTALINE SULFATE. [Concomitant]
     Active Substance: TERBUTALINE SULFATE
     Indication: DYSPNOEA
     Dosage: 5 MG, 3X/DAY
     Route: 048
     Dates: start: 2012
  7. BACLOFEN. [Concomitant]
     Active Substance: BACLOFEN
     Indication: MUSCLE SPASMS
     Dosage: 10 MG, 2X/DAY
     Route: 048
  8. VISTARIL [Concomitant]
     Active Substance: HYDROXYZINE PAMOATE
     Indication: AGITATION
     Dosage: 25 MG, 1X/DAY
  9. BACLOFEN. [Concomitant]
     Active Substance: BACLOFEN
     Dosage: 20 MG, 3X/DAY
     Route: 048
     Dates: start: 2012
  10. MIDODRINE [Concomitant]
     Active Substance: MIDODRINE
     Indication: HEART RATE DECREASED
     Dosage: 10 MG, 2X/DAY
     Route: 048
     Dates: start: 201212
  11. BUSPAR [Concomitant]
     Active Substance: BUSPIRONE HYDROCHLORIDE
     Indication: DEPRESSION
     Dosage: 15 MG, 4X/DAY
     Route: 048
     Dates: start: 2013
  12. PERCOCET [Concomitant]
     Active Substance: ACETAMINOPHEN\OXYCODONE HYDROCHLORIDE
     Indication: MUSCULOSKELETAL PAIN
     Dosage: 4X/DAY
  13. LYRICA [Suspect]
     Active Substance: PREGABALIN
     Indication: BURNING SENSATION
     Dosage: 50 MG
     Route: 048
     Dates: start: 201301
  14. TERBUTALINE [Concomitant]
     Active Substance: TERBUTALINE
     Indication: DYSPNOEA
     Dosage: 5 MG, 3X/DAY
  15. PANTOPRAZOLE [Concomitant]
     Active Substance: PANTOPRAZOLE
     Indication: ABDOMINAL DISCOMFORT
     Dosage: 40 MG, 1X/DAY
  16. ZOFRAN [Concomitant]
     Active Substance: ONDANSETRON HYDROCHLORIDE
     Dosage: 8 MG, 3X/DAY
  17. PROAIR HFA [Concomitant]
     Active Substance: ALBUTEROL SULFATE
     Indication: LUNG DISORDER
     Dosage: ONE PUFF EVERY 6 HOURS
  18. PROTONIX [Concomitant]
     Active Substance: PANTOPRAZOLE SODIUM
     Indication: ABDOMINAL DISCOMFORT
     Dosage: 40 MG, 1X/DAY
     Route: 048
     Dates: start: 2012
  19. COLCRYS [Concomitant]
     Active Substance: COLCHICINE
     Dosage: 0.6 MG, 2X/DAY
     Route: 048

REACTIONS (8)
  - Seizure [Unknown]
  - Condition aggravated [Unknown]
  - Malaise [Unknown]
  - Intentional product use issue [Unknown]
  - Urinary tract infection [Unknown]
  - Lung infection [Unknown]
  - Burning sensation [Unknown]
  - Product physical issue [Unknown]

NARRATIVE: CASE EVENT DATE: 201702
